FAERS Safety Report 8113016-9 (Version None)
Quarter: 2012Q1

REPORT INFORMATION
  Report Type: 
  Country: None (occurrence: None)
  Receive Date: 20120203
  Receipt Date: 20120123
  Transmission Date: 20120608
  Serious: Yes (Hospitalization, Other)
  Sender: FDA-Public Use
  Company Number: ES-ELI_LILLY_AND_COMPANY-ES201201007147

PATIENT
  Sex: Female

DRUGS (3)
  1. ANALGESICS [Concomitant]
     Indication: PAIN
     Dosage: UNK, PRN
  2. LEVOTHYROXINE SODIUM [Concomitant]
     Indication: HYPOTHYROIDISM
     Dosage: 75 MG, QD
     Route: 048
  3. FORTEO [Suspect]
     Indication: OSTEOPOROSIS
     Dosage: 20 UG, QD
     Route: 058
     Dates: start: 20100401, end: 20111101

REACTIONS (1)
  - GASTRIC CANCER STAGE IV [None]
